FAERS Safety Report 9728882 (Version 3)
Quarter: 2014Q2

REPORT INFORMATION
  Report Type: Spontaneous
  Country: US (occurrence: US)
  Receive Date: 20131204
  Receipt Date: 20140428
  Transmission Date: 20141212
  Serious: No
  Sender: FDA-Public Use
  Company Number: US-BIOGENIDEC-2013BI098459

PATIENT
  Sex: Female

DRUGS (6)
  1. TECFIDERA [Suspect]
     Indication: MULTIPLE SCLEROSIS
     Route: 048
     Dates: start: 201305, end: 201308
  2. TECFIDERA [Suspect]
     Indication: MULTIPLE SCLEROSIS
     Dates: start: 20130606
  3. TECFIDERA [Suspect]
     Indication: MULTIPLE SCLEROSIS
     Route: 048
     Dates: start: 201307
  4. TECFIDERA [Suspect]
     Indication: MULTIPLE SCLEROSIS
     Dates: start: 201309, end: 201311
  5. OMEPRAZOLE [Concomitant]
  6. NASONEX [Concomitant]

REACTIONS (15)
  - Fatigue [Unknown]
  - Headache [Unknown]
  - Pain [Unknown]
  - Oropharyngeal discomfort [Unknown]
  - Chest discomfort [Not Recovered/Not Resolved]
  - Gastric disorder [Unknown]
  - Dyspnoea [Recovered/Resolved]
  - Menstruation irregular [Unknown]
  - Underdose [Recovered/Resolved]
  - Dyspepsia [Recovered/Resolved]
  - Vomiting [Unknown]
  - Hot flush [Recovered/Resolved]
  - Nausea [Recovered/Resolved]
  - Diarrhoea [Recovered/Resolved]
  - Abdominal pain upper [Not Recovered/Not Resolved]
